FAERS Safety Report 4543898-9 (Version None)
Quarter: 2005Q1

REPORT INFORMATION
  Report Type: 
  Country: None (occurrence: None)
  Receive Date: 20050103
  Receipt Date: 20040308
  Transmission Date: 20050727
  Serious: Yes (Congenital Anomaly)
  Sender: FDA-Public Use
  Company Number: GXKR2004GB00505

PATIENT
  Age: 0 Year
  Sex: Female
  Weight: 1.4 kg

DRUGS (4)
  1. PREDNISOLONE (NGX) (PREDNISOLONE) [Suspect]
     Dosage: 60 MG, TRANSPLACENTAL
     Route: 064
  2. CYCLOPHOSPHAMIDE [Suspect]
     Dosage: 1 G, TRANSPLACENTAL
     Route: 064
  3. MEDRONE (METHYLPREDNISOLONE) [Suspect]
     Dosage: 1 G, QD, TRANSPLACENTAL
     Route: 064
  4. CO-TRIMOXAZOLE (CO-TRIMOXAZOLE) [Suspect]
     Dosage: TRANSPLACENTAL
     Route: 064

REACTIONS (3)
  - DRUG EXPOSURE DURING PREGNANCY [None]
  - PREMATURE BABY [None]
  - RENAL AGENESIS [None]
